FAERS Safety Report 4652747-X (Version None)
Quarter: 2005Q2

REPORT INFORMATION
  Report Type: 
  Country: None (occurrence: None)
  Receive Date: 20050503
  Receipt Date: 20050322
  Transmission Date: 20051028
  Serious: No
  Sender: FDA-Public Use
  Company Number: 2005S1001474

PATIENT
  Age: 48 Year
  Sex: Male
  Weight: 68.0396 kg

DRUGS (7)
  1. FENTANYL [Suspect]
     Indication: DRUG TOLERANCE
     Dosage: 75 MCG/HR; ;QOD; TDER
     Route: 062
     Dates: start: 20050301, end: 20050313
  2. FENTANYL [Suspect]
     Indication: PAIN
     Dosage: 75 MCG/HR; ;QOD; TDER
     Route: 062
     Dates: start: 20050301, end: 20050313
  3. COLCHICINE [Concomitant]
  4. CYCLOBENZAPRINE HCL [Concomitant]
  5. DOXAZOSIN MESYLATE [Concomitant]
  6. NIFEDIPINE [Concomitant]
  7. LANSOPRAZOLE [Concomitant]

REACTIONS (1)
  - DRUG INEFFECTIVE [None]
